FAERS Safety Report 22991014 (Version 5)
Quarter: 2025Q4

REPORT INFORMATION
  Report Type: Report from Study
  Country: EU (occurrence: EU)
  Receive Date: 20230927
  Receipt Date: 20251114
  Transmission Date: 20260118
  Serious: Yes (Hospitalization, Other)
  Sender: EXELIXIS
  Company Number: EU-KOREA IPSEN Pharma-2023-22216

PATIENT

DRUGS (57)
  1. CABOZANTINIB [Suspect]
     Active Substance: CABOZANTINIB
     Indication: Renal cell carcinoma
     Dosage: 40 MG, QD
     Route: 048
     Dates: start: 20221212, end: 20230109
  2. CABOZANTINIB [Suspect]
     Active Substance: CABOZANTINIB
     Dosage: 20 MG, QD
     Route: 048
     Dates: start: 20230131, end: 20230305
  3. CABOZANTINIB [Suspect]
     Active Substance: CABOZANTINIB
     Dosage: 20 MG, QD
     Route: 048
     Dates: start: 20230428, end: 20230629
  4. CABOZANTINIB [Suspect]
     Active Substance: CABOZANTINIB
     Dosage: 20 MG, QD
     Route: 048
     Dates: start: 20230713, end: 20240108
  5. CABOZANTINIB [Suspect]
     Active Substance: CABOZANTINIB
     Dosage: 20 MG, QD
     Route: 048
     Dates: start: 20240125, end: 20240212
  6. CABOZANTINIB [Suspect]
     Active Substance: CABOZANTINIB
     Dosage: 20 MG, QD
     Route: 048
     Dates: start: 20240329, end: 20240502
  7. CABOZANTINIB [Suspect]
     Active Substance: CABOZANTINIB
     Dosage: 20 MG, QD
     Route: 048
     Dates: start: 20240610, end: 20240722
  8. CABOZANTINIB [Suspect]
     Active Substance: CABOZANTINIB
     Dosage: 20 MG, QOD
     Route: 048
     Dates: start: 20240726, end: 20240811
  9. NIVOLUMAB [Suspect]
     Active Substance: NIVOLUMAB
     Indication: Renal cell carcinoma
     Dosage: 240 MG, ONCE
     Route: 042
     Dates: start: 20221213
  10. NIVOLUMAB [Suspect]
     Active Substance: NIVOLUMAB
     Dosage: 240 MG, ONCE
     Route: 042
     Dates: start: 20221227
  11. NIVOLUMAB [Suspect]
     Active Substance: NIVOLUMAB
     Dosage: 240 MG, ONCE
     Route: 042
     Dates: start: 20230110
  12. NIVOLUMAB [Suspect]
     Active Substance: NIVOLUMAB
     Dosage: 240 MG, ONCE
     Route: 042
     Dates: start: 20230131
  13. NIVOLUMAB [Suspect]
     Active Substance: NIVOLUMAB
     Dosage: 240 MG, ONCE
     Route: 042
     Dates: start: 20230214
  14. NIVOLUMAB [Suspect]
     Active Substance: NIVOLUMAB
     Dosage: 240 MG, ONCE
     Route: 042
     Dates: start: 20230228
  15. NIVOLUMAB [Suspect]
     Active Substance: NIVOLUMAB
     Dosage: 240 MG, ONCE
     Route: 042
     Dates: start: 20230328
  16. NIVOLUMAB [Suspect]
     Active Substance: NIVOLUMAB
     Dosage: 240 MG, ONCE
     Route: 042
     Dates: start: 20230411
  17. NIVOLUMAB [Suspect]
     Active Substance: NIVOLUMAB
     Dosage: 240 MG, ONCE
     Route: 042
     Dates: start: 20230426
  18. NIVOLUMAB [Suspect]
     Active Substance: NIVOLUMAB
     Dosage: 240 MG, ONCE
     Route: 042
     Dates: start: 20230511
  19. NIVOLUMAB [Suspect]
     Active Substance: NIVOLUMAB
     Dosage: 240 MG, ONCE
     Route: 042
     Dates: start: 20230526
  20. NIVOLUMAB [Suspect]
     Active Substance: NIVOLUMAB
     Dosage: 240 MG, ONCE
     Route: 042
     Dates: start: 20230609
  21. NIVOLUMAB [Suspect]
     Active Substance: NIVOLUMAB
     Dosage: 480 MG, ONCE
     Route: 042
     Dates: start: 20230711
  22. NIVOLUMAB [Suspect]
     Active Substance: NIVOLUMAB
     Dosage: 480 MG, ONCE
     Route: 042
     Dates: start: 20230811
  23. NIVOLUMAB [Suspect]
     Active Substance: NIVOLUMAB
     Dosage: 480 MG, ONCE
     Route: 042
     Dates: start: 20230920
  24. NIVOLUMAB [Suspect]
     Active Substance: NIVOLUMAB
     Dosage: 480 MG, ONCE
     Route: 042
     Dates: start: 20231019
  25. NIVOLUMAB [Suspect]
     Active Substance: NIVOLUMAB
     Dosage: 480 MG, ONCE
     Route: 042
     Dates: start: 20231115
  26. NIVOLUMAB [Suspect]
     Active Substance: NIVOLUMAB
     Dosage: 480 MG, ONCE
     Route: 042
     Dates: start: 20231213
  27. NIVOLUMAB [Suspect]
     Active Substance: NIVOLUMAB
     Dosage: 480 MG, ONCE
     Route: 042
     Dates: start: 20240408
  28. NIVOLUMAB [Suspect]
     Active Substance: NIVOLUMAB
     Dosage: 480 MG, ONCE
     Route: 042
     Dates: start: 20240506
  29. NIVOLUMAB [Suspect]
     Active Substance: NIVOLUMAB
     Dosage: 480 MG, ONCE
     Route: 042
     Dates: start: 20240612
  30. NIVOLUMAB [Suspect]
     Active Substance: NIVOLUMAB
     Dosage: 480 MG, ONCE
     Route: 042
     Dates: start: 20240709
  31. NIVOLUMAB [Suspect]
     Active Substance: NIVOLUMAB
     Dosage: 480 MG, ONCE
     Route: 042
     Dates: start: 20240806
  32. NIVOLUMAB [Suspect]
     Active Substance: NIVOLUMAB
     Dosage: 480 MG, ONCE
     Route: 042
     Dates: start: 20240903
  33. NIVOLUMAB [Suspect]
     Active Substance: NIVOLUMAB
     Dosage: 480 MG, ONCE
     Route: 042
     Dates: start: 20241002
  34. NIVOLUMAB [Suspect]
     Active Substance: NIVOLUMAB
     Dosage: 480 MG, ONCE
     Route: 042
     Dates: start: 20241029
  35. NIVOLUMAB [Suspect]
     Active Substance: NIVOLUMAB
     Dosage: 480 MG, ONCE
     Route: 042
     Dates: start: 20241126
  36. NIVOLUMAB [Suspect]
     Active Substance: NIVOLUMAB
     Dosage: 480 MG, ONCE
     Route: 042
     Dates: start: 20241223
  37. PERINDOPRIL [Concomitant]
     Active Substance: PERINDOPRIL
     Indication: Hypertension
     Dosage: UNK
     Dates: end: 20241205
  38. LERCANIDIPINE [Concomitant]
     Active Substance: LERCANIDIPINE
     Indication: Hypertension
     Dosage: UNK
     Route: 048
  39. SIMVASTATIN [Concomitant]
     Active Substance: SIMVASTATIN
     Indication: Prophylaxis
     Dosage: UNK
     Dates: end: 20230317
  40. FUROSEMIDE [Concomitant]
     Active Substance: FUROSEMIDE
     Indication: Hypertension
     Dosage: UNK
     Dates: end: 20240109
  41. OMEPRAZOLE [Concomitant]
     Active Substance: OMEPRAZOLE
     Indication: Gastric ulcer
     Dosage: UNK
     Route: 048
  42. FEBUXOSTAT [Concomitant]
     Active Substance: FEBUXOSTAT
     Indication: Hyperuricaemia
     Dosage: UNK
     Dates: end: 20240109
  43. INCRUSE ELLIPTA [Concomitant]
     Active Substance: UMECLIDINIUM BROMIDE
     Indication: Prophylaxis
     Dosage: UNK
     Route: 055
  44. AUGMENTIN [Concomitant]
     Active Substance: AMOXICILLIN\CLAVULANATE POTASSIUM
     Indication: Autoinflammatory disease
     Dosage: UNK
     Dates: start: 20230306, end: 20230307
  45. AUGMENTIN [Concomitant]
     Active Substance: AMOXICILLIN\CLAVULANATE POTASSIUM
     Indication: Infection
     Dosage: UNK
     Dates: start: 20240213, end: 20240220
  46. AUGMENTIN [Concomitant]
     Active Substance: AMOXICILLIN\CLAVULANATE POTASSIUM
     Indication: Pyrexia
  47. PIPERACILLIN SODIUM\TAZOBACTAM SODIUM [Concomitant]
     Active Substance: PIPERACILLIN SODIUM\TAZOBACTAM SODIUM
     Indication: Infection
     Dosage: UNK
     Dates: start: 20230308, end: 202303
  48. TAHOR [Concomitant]
     Active Substance: ATORVASTATIN CALCIUM
     Indication: Prophylaxis
     Dosage: UNK
     Route: 048
     Dates: start: 20230317
  49. LEVOFLOXACIN [Concomitant]
     Active Substance: LEVOFLOXACIN
     Indication: Urinary tract infection
     Dosage: UNK
     Dates: start: 20230411, end: 20230418
  50. AMOXICILLIN [Concomitant]
     Active Substance: AMOXICILLIN
     Indication: Autoinflammatory disease
     Dosage: UNK
     Dates: start: 20240213, end: 20240220
  51. AMOXICILLIN [Concomitant]
     Active Substance: AMOXICILLIN
     Indication: Pyrexia
     Dosage: UNK
     Dates: start: 20240930, end: 20241007
  52. AMOXICILLIN [Concomitant]
     Active Substance: AMOXICILLIN
     Indication: Urinary tract infection
  53. NITROFURANTOIN [Concomitant]
     Active Substance: NITROFURANTOIN
     Indication: Urinary tract infection
     Dosage: UNK
     Route: 048
     Dates: start: 202404, end: 202404
  54. CIPROFLOXACIN [Concomitant]
     Active Substance: CIPROFLOXACIN
     Indication: Haematuria
     Dosage: UNK
     Dates: start: 20241120, end: 20241204
  55. CIPROFLOXACIN [Concomitant]
     Active Substance: CIPROFLOXACIN
     Indication: Urinary tract infection
  56. TAHOR (ATORVASTATINE) [Concomitant]
     Indication: Prophylaxis
     Dates: start: 20230317
  57. NITROFURANTOIN [Concomitant]
     Active Substance: NITROFURANTOIN
     Indication: Urinary tract infection
     Dates: start: 202404, end: 202404

REACTIONS (21)
  - Multisystem inflammatory syndrome [Recovered/Resolved]
  - Renal impairment [Recovered/Resolved]
  - Acute kidney injury [Recovered/Resolved]
  - Pancreatitis [Recovered/Resolved]
  - Hypokalaemia [Recovered/Resolved]
  - Deep vein thrombosis [Recovered/Resolved]
  - Pulmonary embolism [Recovered/Resolved]
  - Pyrexia [Recovered/Resolved]
  - Influenza [Recovered/Resolved]
  - Cough [Recovered/Resolved]
  - Haematuria [Recovered/Resolved]
  - Diarrhoea [Recovered/Resolved]
  - Vomiting [Recovered/Resolved]
  - Nausea [Recovered/Resolved]
  - Decreased appetite [Recovered/Resolved]
  - Asthenia [Not Recovered/Not Resolved]
  - Diarrhoea [Recovered/Resolved]
  - Vomiting [Recovered/Resolved]
  - Vomiting [Recovered/Resolved]
  - Decreased appetite [Recovered/Resolved]
  - Pancreatic cyst [Not Recovered/Not Resolved]

NARRATIVE: CASE EVENT DATE: 20221201
